FAERS Safety Report 17996387 (Version 1)
Quarter: 2020Q3

REPORT INFORMATION
  Report Type: Spontaneous
  Country: CA (occurrence: CA)
  Receive Date: 20200708
  Receipt Date: 20200708
  Transmission Date: 20201103
  Serious: Yes (Hospitalization)
  Sender: FDA-Public Use
  Company Number: CA-TEVA-2020-CA-1797214

PATIENT
  Age: 2 Year
  Sex: Female

DRUGS (2)
  1. PROCYTOX 1000MG/VIAL [Suspect]
     Active Substance: CYCLOPHOSPHAMIDE
     Route: 065
  2. ETOPOSIDE LIQ IV 20MG/ML [Suspect]
     Active Substance: ETOPOSIDE
     Route: 065

REACTIONS (1)
  - Febrile neutropenia [Recovering/Resolving]
